FAERS Safety Report 7617228-X (Version None)
Quarter: 2011Q3

REPORT INFORMATION
  Report Type: 
  Country: None (occurrence: None)
  Receive Date: 20110718
  Receipt Date: 20110706
  Transmission Date: 20111222
  Serious: Yes (Other)
  Sender: FDA-Public Use
  Company Number: CZ-JNJFOC-20110605453

PATIENT
  Sex: Female

DRUGS (3)
  1. ACIDUM FOLICUM [Concomitant]
  2. REMICADE [Suspect]
     Indication: RHEUMATOID ARTHRITIS
     Route: 042
     Dates: start: 20080704
  3. METHOTREXATE [Concomitant]

REACTIONS (1)
  - LATENT TUBERCULOSIS [None]
